FAERS Safety Report 7371781-2 (Version None)
Quarter: 2011Q1

REPORT INFORMATION
  Report Type: 
  Country: None (occurrence: None)
  Receive Date: 20110324
  Receipt Date: 20110318
  Transmission Date: 20110831
  Serious: Yes (Death, Hospitalization)
  Sender: FDA-Public Use
  Company Number: FR-ROCHE-764645

PATIENT
  Sex: Male
  Weight: 74 kg

DRUGS (21)
  1. MYCOPHENOLATE MOFETIL [Suspect]
     Route: 002
     Dates: start: 20110105, end: 20110308
  2. PREDNISONE [Suspect]
     Route: 002
     Dates: start: 20110106, end: 20110308
  3. LANTUS [Concomitant]
     Dosage: DOSE AS REPORTED: 160 U
     Dates: start: 20110117, end: 20110308
  4. NOVORAPID [Concomitant]
     Dates: start: 20110117, end: 20110301
  5. LACTULOSE [Concomitant]
     Route: 065
     Dates: start: 20110112, end: 20110116
  6. ESIDRIX [Concomitant]
     Dates: start: 20110217, end: 20110301
  7. BACTRIM [Concomitant]
     Dates: start: 20110111, end: 20110308
  8. PHOSPHONEUROS [Concomitant]
     Dates: start: 20110301, end: 20110308
  9. BISOPROLOL FUMARATE [Concomitant]
     Dates: start: 20110301, end: 20110308
  10. ROVALCYTE [Concomitant]
     Dates: start: 20110111, end: 20110308
  11. INIPOMP [Concomitant]
     Dates: start: 20110106, end: 20110308
  12. PHOSPHONEUROS [Concomitant]
     Dates: start: 20110112, end: 20110217
  13. CARDENSIEL [Concomitant]
     Dates: start: 20110106
  14. EVEROLIMUS [Suspect]
     Route: 002
     Dates: start: 20110222, end: 20110308
  15. KARDEGIC [Concomitant]
     Dates: start: 20110112, end: 20110301
  16. CALCIDIA [Concomitant]
     Dates: start: 20110112, end: 20110308
  17. MIRCERA [Concomitant]
     Dosage: FREQUENCY: EVERY OTHER WEEK
     Dates: start: 20110307, end: 20110308
  18. FUROSEMIDE [Concomitant]
     Dates: start: 20110109, end: 20110111
  19. NIFEDIPINE [Concomitant]
     Dates: start: 20110110, end: 20110308
  20. SODIUM BICARBONATE [Concomitant]
     Dates: start: 20110112
  21. EPREX [Concomitant]
     Dosage: ODSE AS REPORTED:; 10000, FREQUENCY: 3 TIMES A WEEK
     Dates: start: 20110303, end: 20110306

REACTIONS (2)
  - SUDDEN DEATH [None]
  - POSTRENAL FAILURE [None]
